FAERS Safety Report 22539472 (Version 2)
Quarter: 2023Q4

REPORT INFORMATION
  Report Type: Other
  Country: IN (occurrence: None)
  Receive Date: 20230609
  Receipt Date: 20231110
  Transmission Date: 20240109
  Serious: Yes (Other)
  Sender: FDA-Public Use
  Company Number: IN-ROCHE-2858319

PATIENT
  Age: 47 Year
  Sex: Female

DRUGS (2)
  1. PERJETA [Suspect]
     Active Substance: PERTUZUMAB
     Indication: Breast cancer metastatic
     Route: 058
     Dates: start: 20220530
  2. PHESGO [Suspect]
     Active Substance: HYALURONIDASE-ZZXF\PERTUZUMAB\TRASTUZUMAB
     Indication: Breast cancer metastatic
     Dosage: FORMULATION: INJECTION
     Route: 058
     Dates: start: 20220603, end: 20230524

REACTIONS (8)
  - Myocardial oedema [Unknown]
  - COVID-19 [Unknown]
  - Hepatomegaly [Unknown]
  - Lymphadenopathy [Unknown]
  - Computerised tomogram abdomen abnormal [Unknown]
  - Off label use [Unknown]
  - Gastric cancer [Unknown]
  - Lymphoma [Unknown]
